FAERS Safety Report 5049223-1 (Version None)
Quarter: 2006Q3

REPORT INFORMATION
  Report Type: 
  Country: None (occurrence: None)
  Receive Date: 20060706
  Receipt Date: 20060627
  Transmission Date: 20061208
  Serious: Yes (Death, Hospitalization)
  Sender: FDA-Public Use
  Company Number: THQ2006A00559

PATIENT
  Age: 65 Year
  Sex: Female

DRUGS (2)
  1. LANSOPRAZOLE [Suspect]
     Dates: start: 20040301
  2. VANCOMYCIN [Suspect]
     Dates: start: 20040301

REACTIONS (3)
  - SKIN INFECTION [None]
  - THERMAL BURN [None]
  - TOXIC EPIDERMAL NECROLYSIS [None]
